FAERS Safety Report 18673452 (Version 1)
Quarter: 2020Q4

REPORT INFORMATION
  Report Type: Spontaneous
  Country: US (occurrence: US)
  Receive Date: 20201228
  Receipt Date: 20201228
  Transmission Date: 20210114
  Serious: Yes (Life-Threatening, Hospitalization)
  Sender: FDA-Public Use
  Company Number: US-ELI_LILLY_AND_COMPANY-US202012012945

PATIENT
  Age: 84 Year
  Sex: Female
  Weight: 81 kg

DRUGS (1)
  1. BAMLANIVIMAB 700MG [Suspect]
     Active Substance: BAMLANIVIMAB
     Indication: COVID-19
     Dosage: 700 MG, SINGLE
     Route: 042
     Dates: start: 20201215, end: 20201215

REACTIONS (7)
  - Pneumonia [Unknown]
  - Hypertension [Unknown]
  - Dyspnoea [Recovered/Resolved]
  - COVID-19 pneumonia [Unknown]
  - Acute pulmonary oedema [Unknown]
  - Infusion related reaction [Unknown]
  - Hypoxia [Recovered/Resolved]

NARRATIVE: CASE EVENT DATE: 20201215
